FAERS Safety Report 5982825-4 (Version None)
Quarter: 2008Q4

REPORT INFORMATION
  Report Type: 
  Country: None (occurrence: None)
  Receive Date: 20081125
  Receipt Date: 20071001
  Transmission Date: 20090506
  Serious: Yes (Death, Other)
  Sender: FDA-Public Use
  Company Number: 2008MP000016

PATIENT

DRUGS (1)
  1. GLIADEL [Suspect]
     Indication: GLIOBLASTOMA MULTIFORME
     Dosage: 1X;ICER

REACTIONS (3)
  - DISEASE PROGRESSION [None]
  - IMPLANT SITE NECROSIS [None]
  - POSTOPERATIVE WOUND COMPLICATION [None]
